FAERS Safety Report 9635353 (Version 2)
Quarter: 2013Q4

REPORT INFORMATION
  Report Type: Spontaneous
  Country: US (occurrence: US)
  Receive Date: 20131021
  Receipt Date: 20131021
  Transmission Date: 20140711
  Serious: No
  Sender: FDA-Public Use
  Company Number: US-PURDUE-USA-2013-0103921

PATIENT
  Sex: Female

DRUGS (4)
  1. BUTRANS [Suspect]
     Indication: PAIN
     Dosage: 10 MCG/HR, WEEKLY
     Route: 062
     Dates: start: 20130624
  2. LYRICA [Concomitant]
     Indication: FIBROMYALGIA
  3. LORAZEPAM [Concomitant]
     Indication: INSOMNIA
  4. VICODIN [Concomitant]
     Indication: BREAKTHROUGH PAIN

REACTIONS (5)
  - Inappropriate schedule of drug administration [Unknown]
  - Drug ineffective [Recovering/Resolving]
  - Application site erythema [Unknown]
  - Application site rash [Unknown]
  - Product adhesion issue [Unknown]
